FAERS Safety Report 12429611 (Version 1)
Quarter: 2016Q2

REPORT INFORMATION
  Report Type: Spontaneous
  Country: DE (occurrence: DE)
  Receive Date: 20160602
  Receipt Date: 20160602
  Transmission Date: 20160815
  Serious: Yes (Hospitalization)
  Sender: FDA-Public Use
  Company Number: DE-BAYER-2016-103622

PATIENT
  Age: 47 Year
  Sex: Female
  Weight: 42 kg

DRUGS (6)
  1. AMIODARON [Concomitant]
     Active Substance: AMIODARONE
  2. SILDENAFIL. [Concomitant]
     Active Substance: SILDENAFIL
  3. FUROSEMID [Concomitant]
     Active Substance: FUROSEMIDE
  4. HCT [Concomitant]
     Active Substance: HYDROCHLOROTHIAZIDE
  5. SPIRONOLACTON [Concomitant]
     Active Substance: SPIRONOLACTONE
  6. ADEMPAS [Suspect]
     Active Substance: RIOCIGUAT
     Indication: PULMONARY HYPERTENSION
     Dosage: 1 MG, BID
     Route: 048
     Dates: start: 20160414

REACTIONS (2)
  - Migraine [Unknown]
  - Hypotension [Unknown]

NARRATIVE: CASE EVENT DATE: 20160416
